FAERS Safety Report 6434905-7 (Version None)
Quarter: 2009Q4

REPORT INFORMATION
  Report Type: 
  Country: None (occurrence: None)
  Receive Date: 20091109
  Receipt Date: 20091109
  Transmission Date: 20100525
  Serious: No
  Sender: FDA-Public Use
  Company Number: None

PATIENT
  Sex: Male
  Weight: 77.2 kg

DRUGS (2)
  1. TACROLIMUS [Suspect]
     Indication: IMMUNOSUPPRESSION
     Dosage: 2 MG TWICE DAILY BY MOUTH
     Route: 048
     Dates: start: 20090828, end: 20090911
  2. TACROLIMUS [Suspect]
     Indication: LIVER TRANSPLANT
     Dosage: 2 MG TWICE DAILY BY MOUTH
     Route: 048
     Dates: start: 20090828, end: 20090911

REACTIONS (2)
  - DRUG LEVEL DECREASED [None]
  - PRODUCT SUBSTITUTION ISSUE [None]
